FAERS Safety Report 9577340 (Version 1)
Quarter: 2013Q4

REPORT INFORMATION
  Report Type: Spontaneous
  Country: US (occurrence: US)
  Receive Date: 20131001
  Receipt Date: 20131001
  Transmission Date: 20140711
  Serious: No
  Sender: FDA-Public Use
  Company Number: US-AMGEN-USASP2013007492

PATIENT
  Age: 36 Year
  Sex: Male
  Weight: 70.3 kg

DRUGS (7)
  1. ENBREL [Suspect]
     Indication: PRODUCT USED FOR UNKNOWN INDICATION
     Dosage: 50 MG, QWK
     Route: 058
  2. HUMIRA [Concomitant]
     Indication: CROHN^S DISEASE
     Dosage: 40 MG/ 0.8, UNK
  3. HUMIRA [Concomitant]
     Indication: RHEUMATOID ARTHRITIS
  4. CYCLOBENZAPRINE [Concomitant]
     Dosage: 10 MG, UNK
  5. HYDROCODONE/APAP [Concomitant]
     Dosage: 5-325 MG, UNK
  6. TRAMADOL HYDROCHLORIDE [Concomitant]
     Dosage: 200 MG, UNK
  7. IMODIUM A-D [Concomitant]
     Dosage: 2 MG, UNK

REACTIONS (1)
  - Drug ineffective [Unknown]
